FAERS Safety Report 19265729 (Version 1)
Quarter: 2021Q2

REPORT INFORMATION
  Report Type: Spontaneous
  Country: US (occurrence: US)
  Receive Date: 20210517
  Receipt Date: 20210517
  Transmission Date: 20210717
  Serious: No
  Sender: FDA-Public Use
  Company Number: US-SA-2021SA158551

PATIENT
  Age: 48 Year
  Sex: Female

DRUGS (7)
  1. LITHIUM CARBON [Concomitant]
     Active Substance: LITHIUM CARBONATE
     Dosage: UNK
  2. ALENDRONATE [Concomitant]
     Active Substance: ALENDRONATE SODIUM
     Dosage: UNK
  3. METFORMIN [Concomitant]
     Active Substance: METFORMIN HYDROCHLORIDE
     Dosage: UNK
  4. DUPIXENT [Suspect]
     Active Substance: DUPILUMAB
     Indication: CUTANEOUS LUPUS ERYTHEMATOSUS
     Dosage: 300 MG, QOW
     Route: 058
     Dates: start: 20200909
  5. AMFETAMINE;DEXAMFETAMINE [Concomitant]
     Dosage: UNK
  6. FLUTICASONE. [Concomitant]
     Active Substance: FLUTICASONE
     Dosage: UNK
  7. PROPRANOLOL [PROPRANOLOL HYDROCHLORIDE] [Concomitant]
     Active Substance: PROPRANOLOL HYDROCHLORIDE
     Dosage: UNK

REACTIONS (3)
  - Injection site pustule [Recovered/Resolved]
  - Injection site pain [Not Recovered/Not Resolved]
  - Product use in unapproved indication [Unknown]

NARRATIVE: CASE EVENT DATE: 20200909
